FAERS Safety Report 24282594 (Version 2)
Quarter: 2025Q3

REPORT INFORMATION
  Report Type: Report from Study
  Country: CA (occurrence: CA)
  Receive Date: 20240904
  Receipt Date: 20250916
  Transmission Date: 20251020
  Serious: Yes (Other)
  Sender: SANDOZ
  Company Number: CA-SANDOZ-SDZ2024CA075129

PATIENT
  Sex: Female

DRUGS (2)
  1. HYRIMOZ [Suspect]
     Active Substance: ADALIMUMAB-ADAZ
     Dosage: 40 MG, QW
     Route: 058
     Dates: start: 20240901
  2. HYRIMOZ [Suspect]
     Active Substance: ADALIMUMAB-ADAZ
     Indication: Colitis ulcerative
     Dosage: 160 MG SC SEM0, 80 MG SEM2 PUIS 40MG Q2SEMAINES ? PARTIR DE LA SEM4;EVERY TWO WEEKS (40 MG / 0.8 ML
     Route: 058
     Dates: start: 20240408

REACTIONS (2)
  - Colitis ulcerative [Unknown]
  - Off label use [Unknown]
